FAERS Safety Report 15703472 (Version 1)
Quarter: 2018Q4

REPORT INFORMATION
  Report Type: Spontaneous
  Country: US (occurrence: US)
  Receive Date: 20181127
  Receipt Date: 20181127
  Transmission Date: 20190205
  Serious: Yes (Disabling)
  Sender: FDA-Public Use
  Company Number: None

PATIENT
  Age: 75 Year
  Sex: Female
  Weight: 81 kg

DRUGS (7)
  1. NEOMYCIN/POLYMYXIN/DEXAME OPTHALMIC OINTMENT USP [Suspect]
     Active Substance: DEXAMETHASONE\NEOMYCIN SULFATE\POLYMYXIN B SULFATE
     Indication: INFECTION PROPHYLAXIS
     Dosage: ?          QUANTITY:1 DROP(S);?
     Route: 047
     Dates: start: 20181119, end: 20181123
  2. VITAMIN D3 [Suspect]
     Active Substance: CHOLECALCIFEROL
  3. CELEXA [Concomitant]
     Active Substance: CITALOPRAM HYDROBROMIDE
  4. PRESERVISION VITAMINS [Concomitant]
  5. CALCIUM [Concomitant]
     Active Substance: CALCIUM
  6. PLAQUENIL [Concomitant]
     Active Substance: HYDROXYCHLOROQUINE SULFATE
  7. FISH OIL [Concomitant]
     Active Substance: FISH OIL

REACTIONS (5)
  - Lacrimation increased [None]
  - Eye irritation [None]
  - Drug hypersensitivity [None]
  - Ocular hyperaemia [None]
  - Eye pain [None]

NARRATIVE: CASE EVENT DATE: 20181122
